FAERS Safety Report 8490451-0 (Version None)
Quarter: 2012Q3

REPORT INFORMATION
  Report Type: 
  Country: None (occurrence: None)
  Receive Date: 20120705
  Receipt Date: 20120625
  Transmission Date: 20120928
  Serious: Yes (Death, Hospitalization)
  Sender: FDA-Public Use
  Company Number: BE-CELGENEUS-013-20785-12062732

PATIENT
  Sex: Female
  Weight: 53 kg

DRUGS (10)
  1. ASPIRIN [Concomitant]
     Route: 048
     Dates: start: 20111102, end: 20120618
  2. CRESTOR [Concomitant]
     Route: 048
     Dates: start: 20070101, end: 20120618
  3. THALIDOMIDE [Suspect]
     Indication: MULTIPLE MYELOMA
     Dosage: 100 MILLIGRAM
     Route: 048
     Dates: start: 20111230, end: 20120502
  4. PREDNISONE [Suspect]
     Indication: MULTIPLE MYELOMA
     Route: 048
     Dates: start: 20111104, end: 20120426
  5. XANAX [Concomitant]
     Indication: SEDATIVE THERAPY
     Route: 048
     Dates: end: 20120618
  6. OMEPRAZOLE [Concomitant]
     Route: 048
     Dates: start: 20111102, end: 20120618
  7. THALIDOMIDE [Suspect]
     Dosage: 200 MILLIGRAM
     Route: 048
     Dates: start: 20111104, end: 20111229
  8. MELPHALAN HYDROCHLORIDE [Suspect]
     Indication: MULTIPLE MYELOMA
     Route: 048
     Dates: start: 20111104, end: 20120426
  9. HYDROCORTISONE [Concomitant]
     Indication: ADDISON'S DISEASE
     Route: 048
     Dates: start: 19970101, end: 20120618
  10. LEVOTHYROXINE SODIUM [Concomitant]
     Indication: HYPOTHYROIDISM
     Route: 048
     Dates: end: 20120618

REACTIONS (1)
  - GENERAL PHYSICAL HEALTH DETERIORATION [None]
